FAERS Safety Report 8588317-0 (Version None)
Quarter: 2012Q3

REPORT INFORMATION
  Report Type: 
  Country: None (occurrence: None)
  Receive Date: 20120813
  Receipt Date: 20120801
  Transmission Date: 20120928
  Serious: Yes (Other)
  Sender: FDA-Public Use
  Company Number: MX-ELI_LILLY_AND_COMPANY-MX201207002235

PATIENT
  Age: 26 Year
  Sex: Female

DRUGS (1)
  1. CYMBALTA [Suspect]
     Indication: DEPRESSION
     Dosage: 60 MG, QD

REACTIONS (7)
  - SUICIDAL IDEATION [None]
  - NAUSEA [None]
  - ANXIETY [None]
  - HEADACHE [None]
  - REBOUND EFFECT [None]
  - DEPRESSION [None]
  - INTENTIONAL DRUG MISUSE [None]
